FAERS Safety Report 8312748-7 (Version None)
Quarter: 2012Q2

REPORT INFORMATION
  Report Type: 
  Country: None (occurrence: None)
  Receive Date: 20120426
  Receipt Date: 20120419
  Transmission Date: 20120825
  Serious: Yes (Hospitalization, Other)
  Sender: FDA-Public Use
  Company Number: US-AMGEN-USASP2012024959

PATIENT
  Age: 70 Year
  Sex: Male

DRUGS (1)
  1. ENBREL [Suspect]
     Indication: PSORIATIC ARTHROPATHY
     Dosage: 25 MG, 2 TIMES/WK
     Dates: start: 20000701

REACTIONS (9)
  - VASCULAR GRAFT [None]
  - ANAEMIA [None]
  - RENAL FAILURE [None]
  - TRANSFUSION [None]
  - PAIN IN EXTREMITY [None]
  - INAPPROPRIATE SCHEDULE OF DRUG ADMINISTRATION [None]
  - DEMENTIA ALZHEIMER'S TYPE [None]
  - RENAL IMPAIRMENT [None]
  - DIABETES MELLITUS [None]
